FAERS Safety Report 8859818 (Version 1)
Quarter: 2012Q4

REPORT INFORMATION
  Report Type: Report from Study
  Country: US (occurrence: US)
  Receive Date: 20121025
  Receipt Date: 20121025
  Transmission Date: 20130627
  Serious: No
  Sender: FDA-Public Use
  Company Number: US-ABBOTT-11P-163-0873035-00

PATIENT
  Age: 31 None
  Sex: Female
  Weight: 49.94 kg

DRUGS (3)
  1. LUPRON DEPOT 3.75 MG [Suspect]
     Indication: ENDOMETRIOSIS
     Route: 030
     Dates: start: 20111102
  2. CYMBALTA [Concomitant]
     Indication: PRODUCT USED FOR UNKNOWN INDICATION
     Route: 048
  3. ALPRAZOLAM [Concomitant]
     Indication: PRODUCT USED FOR UNKNOWN INDICATION
     Route: 048

REACTIONS (7)
  - Abdominal pain [Recovering/Resolving]
  - Hypoaesthesia oral [Recovered/Resolved]
  - Burning sensation [Recovered/Resolved]
  - Nausea [Recovered/Resolved]
  - Hypoaesthesia [Recovered/Resolved]
  - Hypoaesthesia [Recovered/Resolved]
  - Menstruation irregular [Recovering/Resolving]
